FAERS Safety Report 5670889-7 (Version None)
Quarter: 2008Q1

REPORT INFORMATION
  Report Type: 
  Country: None (occurrence: None)
  Receive Date: 20080318
  Receipt Date: 20080312
  Transmission Date: 20080703
  Serious: Yes (Other)
  Sender: FDA-Public Use
  Company Number: A0714948A

PATIENT
  Age: 44 Year
  Sex: Female

DRUGS (2)
  1. LAMICTAL [Suspect]
     Dosage: 100MG TWICE PER DAY
     Route: 048
     Dates: start: 20000101
  2. CABERGOLINE [Concomitant]

REACTIONS (5)
  - CONVULSION [None]
  - DISORIENTATION [None]
  - INSOMNIA [None]
  - PAIN [None]
  - TONGUE BITING [None]
